FAERS Safety Report 7948576-1 (Version None)
Quarter: 2011Q4

REPORT INFORMATION
  Report Type: 
  Country: None (occurrence: None)
  Receive Date: 20111123
  Receipt Date: 20111115
  Transmission Date: 20120403
  Serious: Yes (Hospitalization)
  Sender: FDA-Public Use
  Company Number: 2011MA016572

PATIENT
  Age: 53 Year
  Sex: Male

DRUGS (5)
  1. HALOPERIDOL [Suspect]
     Indication: PSYCHOTIC DISORDER
     Dosage: 10 MG
  2. PROMETH SYRUP PLAIN (PROMETHAZINE HCL SYRUP USP, 6.25 MG/5 ML) (ALPHAR [Suspect]
     Indication: PSYCHOTIC DISORDER
     Dosage: 50 MG
  3. VALPROIC ACID [Suspect]
     Indication: PSYCHOTIC DISORDER
     Dosage: 1500 MG
  4. LITHIUM CARBONATE [Suspect]
     Indication: PSYCHOTIC DISORDER
     Dosage: 900 MG, QD
  5. PIPOTIAZINE (PIPOTIAZINE) [Suspect]
     Indication: PSYCHOTIC DISORDER
     Dosage: 50 MG QM

REACTIONS (4)
  - TREATMENT NONCOMPLIANCE [None]
  - MANIA [None]
  - PSYCHOTIC DISORDER [None]
  - DRUG INEFFECTIVE [None]
